FAERS Safety Report 23987225 (Version 1)
Quarter: 2024Q2

REPORT INFORMATION
  Report Type: Spontaneous
  Country: US (occurrence: None)
  Receive Date: 20240618
  Receipt Date: 20240618
  Transmission Date: 20240716
  Serious: Yes (Hospitalization)
  Sender: FDA-Public Use
  Company Number: None

PATIENT
  Age: 15 Year
  Sex: Male
  Weight: 79.2 kg

DRUGS (2)
  1. NIVOLUMAB [Suspect]
     Active Substance: NIVOLUMAB
     Indication: Hepatocellular carcinoma
     Dosage: OTHER FREQUENCY : EVERY 4 WEEKS;?
     Route: 041
  2. LENVIMA [Concomitant]
     Active Substance: LENVATINIB
     Dates: start: 20220520, end: 20240314

REACTIONS (7)
  - Infusion related reaction [None]
  - Angioedema [None]
  - Adrenal insufficiency [None]
  - Swelling face [None]
  - Capillary leak syndrome [None]
  - Pleural effusion [None]
  - Therapy cessation [None]

NARRATIVE: CASE EVENT DATE: 20240314
